FAERS Safety Report 17693236 (Version 1)
Quarter: 2020Q2

REPORT INFORMATION
  Report Type: Spontaneous
  Country: US (occurrence: US)
  Receive Date: 20200421
  Receipt Date: 20200421
  Transmission Date: 20200714
  Serious: No
  Sender: FDA-Public Use
  Company Number: None

PATIENT
  Age: 51 Year
  Sex: Female

DRUGS (1)
  1. HUMIRA [Suspect]
     Active Substance: ADALIMUMAB
     Indication: RHEUMATOID ARTHRITIS
     Route: 058

REACTIONS (6)
  - Injection site swelling [None]
  - Needle issue [None]
  - Device ineffective [None]
  - Injection site haemorrhage [None]
  - Incorrect dose administered [None]
  - Screaming [None]

NARRATIVE: CASE EVENT DATE: 20200322
